FAERS Safety Report 22661311 (Version 1)
Quarter: 2023Q2

REPORT INFORMATION
  Report Type: Spontaneous
  Country: GB (occurrence: GB)
  Receive Date: 20230630
  Receipt Date: 20230630
  Transmission Date: 20230721
  Serious: No
  Sender: FDA-Public Use
  Company Number: GB-JAZZ-2022-GB-030269

PATIENT
  Age: 7 Year
  Sex: Male

DRUGS (8)
  1. CANNABIDIOL [Suspect]
     Active Substance: CANNABIDIOL
     Indication: Tuberous sclerosis complex
     Dosage: 5 MILLIGRAM/KILOGRAM, QD
  2. CANNABIDIOL [Suspect]
     Active Substance: CANNABIDIOL
     Dosage: 10 MILLIGRAM/KILOGRAM, QD
  3. CANNABIDIOL [Suspect]
     Active Substance: CANNABIDIOL
     Dosage: 5 MILLIGRAM/KILOGRAM, QD
  4. EVEROLIMUS [Concomitant]
     Active Substance: EVEROLIMUS
     Dosage: UNK
  5. NITRAZEPAM [Concomitant]
     Active Substance: NITRAZEPAM
     Dosage: UNK
  6. VIGABATRIN [Concomitant]
     Active Substance: VIGABATRIN
     Dosage: UNK
  7. LEVETIRACETAM [Concomitant]
     Active Substance: LEVETIRACETAM
     Dosage: UNK
  8. PHENOBARBITAL [Concomitant]
     Active Substance: PHENOBARBITAL
     Dosage: UNK

REACTIONS (1)
  - Diarrhoea [Recovered/Resolved]
